FAERS Safety Report 6852289-7 (Version None)
Quarter: 2010Q3

REPORT INFORMATION
  Report Type: 
  Country: None (occurrence: None)
  Receive Date: 20100717
  Receipt Date: 20071111
  Transmission Date: 20110219
  Serious: No
  Sender: FDA-Public Use
  Company Number: US-PFIZER INC-2007095650

PATIENT
  Sex: Male
  Weight: 108.18 kg

DRUGS (3)
  1. CHANTIX [Suspect]
     Indication: EX-TOBACCO USER
     Dates: start: 20071026, end: 20071109
  2. CITALOPRAM HYDROBROMIDE [Concomitant]
  3. ZOLPIDEM [Concomitant]

REACTIONS (3)
  - DIARRHOEA [None]
  - ILL-DEFINED DISORDER [None]
  - NAUSEA [None]
